FAERS Safety Report 9333596 (Version 1)
Quarter: 2013Q2

REPORT INFORMATION
  Report Type: Spontaneous
  Country: US (occurrence: US)
  Receive Date: 20130606
  Receipt Date: 20130606
  Transmission Date: 20140414
  Serious: No
  Sender: FDA-Public Use
  Company Number: US-AMGEN-USASP2012078163

PATIENT
  Age: 62 Year
  Sex: Female

DRUGS (17)
  1. PROLIA [Suspect]
     Indication: OSTEOPOROSIS POSTMENOPAUSAL
     Dosage: 60 MG, UNK
     Dates: start: 20120717
  2. ARMOUR THYROID [Concomitant]
     Dosage: UNK
  3. NEXIUM                             /01479302/ [Concomitant]
     Dosage: UNK
  4. B12                                /00056201/ [Concomitant]
     Dosage: UNK UNK, QMO
  5. CALCIUM [Concomitant]
     Dosage: 1200 MG, UNK
  6. VITAMIN D3 [Concomitant]
  7. RESTASIS [Concomitant]
     Dosage: UNK
  8. ULTIMATE [Concomitant]
     Dosage: UNK
  9. COQ10                              /00517201/ [Concomitant]
     Dosage: UNK
  10. DHEA [Concomitant]
     Dosage: UNK
  11. EYE DROPS                          /00256502/ [Concomitant]
     Dosage: UNK UNK, PRN
  12. FRESHKOTE [Concomitant]
     Dosage: UNK
  13. FLUTICASONE [Concomitant]
     Dosage: UNK
  14. LIDODERM [Concomitant]
     Dosage: UNK UNK, PRN
  15. IPRATROPIUM BROMIDE [Concomitant]
     Dosage: UNK
  16. MULTIVITAMIN                       /00097801/ [Concomitant]
     Dosage: UNK
  17. FLU [Concomitant]
     Dosage: UNK
     Dates: start: 201209

REACTIONS (7)
  - Blister [Recovering/Resolving]
  - Muscle spasms [Unknown]
  - Pain [Unknown]
  - Tooth fracture [Unknown]
  - Tooth disorder [Unknown]
  - Fatigue [Unknown]
  - Vertigo [Recovered/Resolved]
